FAERS Safety Report 13675696 (Version 1)
Quarter: 2017Q2

REPORT INFORMATION
  Report Type: Spontaneous
  Country: TN (occurrence: TN)
  Receive Date: 20170621
  Receipt Date: 20170621
  Transmission Date: 20170830
  Serious: Yes (Other)
  Sender: FDA-Public Use
  Company Number: TN-ALLERGAN-1725489US

PATIENT
  Age: 8 Year
  Sex: Male

DRUGS (1)
  1. ALPHAGAN 0.2 MG/ML [Suspect]
     Active Substance: BRIMONIDINE TARTRATE
     Indication: INTRAOCULAR PRESSURE INCREASED
     Dosage: UNK
     Route: 047
     Dates: start: 20161207, end: 20170613

REACTIONS (4)
  - Aniridia [Not Recovered/Not Resolved]
  - Condition aggravated [None]
  - Visual impairment [Unknown]
  - Corneal dystrophy [Unknown]

NARRATIVE: CASE EVENT DATE: 201705
